FAERS Safety Report 7128397-2 (Version None)
Quarter: 2010Q4

REPORT INFORMATION
  Report Type: 
  Country: None (occurrence: None)
  Receive Date: 20101112
  Receipt Date: 20101104
  Transmission Date: 20110411
  Serious: Yes (Hospitalization)
  Sender: FDA-Public Use
  Company Number: 2009EN000225

PATIENT
  Age: 15 Year
  Sex: Female
  Weight: 69.4 kg

DRUGS (6)
  1. ONCASPAR [Suspect]
     Indication: ACUTE LYMPHOCYTIC LEUKAEMIA
     Dosage: 4425 IU;X1;IV
     Route: 042
     Dates: start: 20090713, end: 20090713
  2. PREDNISONE [Suspect]
     Indication: ACUTE LYMPHOCYTIC LEUKAEMIA
     Dosage: 2625 MG;BID;PO
     Route: 048
     Dates: start: 20090710, end: 20090803
  3. DAUNORUBICIN HCL [Suspect]
     Indication: ACUTE LYMPHOCYTIC LEUKAEMIA
     Dosage: 135 MG;IV
     Route: 042
     Dates: start: 20090710, end: 20090724
  4. VINCRISTINE [Suspect]
     Indication: ACUTE LYMPHOCYTIC LEUKAEMIA
     Dosage: 6 MG;IV
     Route: 042
     Dates: start: 20090710, end: 20090724
  5. CYTARABINE [Concomitant]
  6. METHOTREXATE [Concomitant]

REACTIONS (12)
  - ABDOMINAL PAIN [None]
  - ASCITES [None]
  - CONSTIPATION [None]
  - DIABETES MELLITUS [None]
  - DISSEMINATED INTRAVASCULAR COAGULATION [None]
  - HYPERBILIRUBINAEMIA [None]
  - HYPOTENSION [None]
  - PALLOR [None]
  - PANCREATIC INSUFFICIENCY [None]
  - PANCREATITIS NECROTISING [None]
  - PLEURAL EFFUSION [None]
  - PNEUMOMEDIASTINUM [None]
